FAERS Safety Report 8267851-7 (Version None)
Quarter: 2012Q2

REPORT INFORMATION
  Report Type: 
  Country: None (occurrence: None)
  Receive Date: 20120405
  Receipt Date: 20120405
  Transmission Date: 20120825
  Serious: Yes (Hospitalization)
  Sender: FDA-Public Use
  Company Number: None

PATIENT
  Age: 40 Year
  Sex: Female
  Weight: 168.7 kg

DRUGS (6)
  1. METOPROLOL TARTRATE [Concomitant]
  2. TELMISARTAN [Suspect]
     Indication: HYPERTENSION
     Dosage: 20MG DAILY PO CHRONIC
  3. AMITRIPTYLINE HYDROCHLORIDE [Concomitant]
  4. PROTONIX [Concomitant]
  5. VESICARE [Concomitant]
  6. METFORMIN HCL [Concomitant]

REACTIONS (3)
  - DRUG HYPERSENSITIVITY [None]
  - OEDEMA PERIPHERAL [None]
  - PRURITUS [None]
